FAERS Safety Report 17236770 (Version 5)
Quarter: 2020Q2

REPORT INFORMATION
  Report Type: Spontaneous
  Country: US (occurrence: US)
  Receive Date: 20200106
  Receipt Date: 20200514
  Transmission Date: 20200713
  Serious: Yes (Other)
  Sender: FDA-Public Use
  Company Number: US-PFIZER INC-2020003486

PATIENT
  Age: 25 Year
  Sex: Female
  Weight: 72.56 kg

DRUGS (2)
  1. PREMARIN [Suspect]
     Active Substance: ESTROGENS, CONJUGATED
     Indication: HYPERHIDROSIS
     Dosage: UNK [STRENGTH: 1.2 MG; QUANTITY FOR 90 DAYS: 90 TABS]
  2. PREMARIN [Suspect]
     Active Substance: ESTROGENS, CONJUGATED
     Indication: HYSTERECTOMY
     Dosage: 1.25 MG, 1X/DAY(1 TABLET BY MOUTH ONCE A DAY)
     Route: 048

REACTIONS (5)
  - Hyperhidrosis [Unknown]
  - Drug dependence [Not Recovered/Not Resolved]
  - Wrong strength [Unknown]
  - Body height decreased [Unknown]
  - Dehydration [Unknown]

NARRATIVE: CASE EVENT DATE: 1979
